FAERS Safety Report 6249557-9 (Version None)
Quarter: 2009Q2

REPORT INFORMATION
  Report Type: 
  Country: None (occurrence: None)
  Receive Date: 20090625
  Receipt Date: 20090625
  Transmission Date: 20091009
  Serious: Yes (Other)
  Sender: FDA-Public Use
  Company Number: None

PATIENT
  Age: 44 Year
  Sex: Female
  Weight: 111.1313 kg

DRUGS (14)
  1. CARAFATE [Suspect]
     Indication: DYSPEPSIA
     Dosage: 1G QID; ORAL
     Route: 048
  2. PRIMIDONE [Suspect]
     Indication: EPILEPSY
     Dosage: 1 TABLET; TID OF QID; FROM AGE 7 MONTHS TO 16.5 YEARS
     Dates: start: 20010710
  3. METFORMIN HCL [Suspect]
     Indication: BLOOD TESTOSTERONE
     Dosage: 500 MG, BID, ORAL
     Route: 048
     Dates: start: 20040101
  4. LITHIUM CARBONATE [Suspect]
     Indication: AFFECTIVE DISORDER
     Dosage: 300MG, BID; ORAL
     Route: 048
     Dates: start: 20040101
  5. WELLBUTRIN XL [Suspect]
     Indication: DEPRESSION
     Dosage: 150MG, DAILY; ORAL
     Route: 048
     Dates: start: 20040101
  6. ESTRADIOL [Suspect]
     Indication: HYSTERECTOMY
     Dosage: 2MG, BID; ORAL
     Route: 048
     Dates: start: 20060101
  7. RELPAX [Suspect]
     Indication: MIGRAINE
     Dosage: 20MG, PRN; ORAL
     Route: 048
     Dates: start: 20030101
  8. PREVACID [Suspect]
     Indication: DYSPEPSIA
     Dosage: 30MG, BID; ORAL
     Route: 048
     Dates: start: 20030101
  9. BUPROPION [Suspect]
     Indication: SEASONAL AFFECTIVE DISORDER
     Dosage: 75MG, DAILY; ORAL
     Route: 048
     Dates: start: 20010101
  10. CLOTRIMAZOLE [Suspect]
     Indication: FUNGAL INFECTION
     Dosage: 1% CREAM, BID; TOPICAL
     Route: 061
     Dates: start: 20070101
  11. FUNGOID TINC [Suspect]
     Indication: ONYCHOMYCOSIS
     Dosage: 2%, BID; TOPICAL
     Route: 061
     Dates: start: 20080101
  12. ADVAIR 9FLUTICASONE PROPIONATE, SALMETEROL XINAFOATE) 250/250MG [Suspect]
     Indication: BRONCHITIS
     Dosage: 1 PUFF, BID; RESPIRATORY
     Route: 055
     Dates: start: 20090101
  13. XOPENEX [Suspect]
     Indication: ASTHMA
     Dosage: 1 PUFF, PRN; RESPIRATORY
     Route: 055
     Dates: start: 20080601
  14. DICYCLOMINE [Suspect]
     Indication: DYSPEPSIA
     Dosage: 10MG, QID; ORAL
     Route: 048
     Dates: start: 20070201

REACTIONS (5)
  - ALTERED STATE OF CONSCIOUSNESS [None]
  - BLINDNESS TRANSIENT [None]
  - DEAFNESS TRANSITORY [None]
  - HYPERACUSIS [None]
  - SWELLING FACE [None]
